FAERS Safety Report 15755549 (Version 1)
Quarter: 2018Q4

REPORT INFORMATION
  Report Type: Spontaneous
  Country: CN (occurrence: CN)
  Receive Date: 20181224
  Receipt Date: 20181224
  Transmission Date: 20190205
  Serious: Yes (Life-Threatening)
  Sender: FDA-Public Use
  Company Number: PHHY2018CN192551

PATIENT
  Age: 60 Year
  Sex: Male

DRUGS (1)
  1. FLUORESCEIN SODIUM. [Suspect]
     Active Substance: FLUORESCEIN SODIUM
     Indication: ANGIOGRAM RETINA
     Dosage: 3.5 ML, ONCE/SINGLE (3 TO 3.5 ML)
     Route: 042
     Dates: start: 20181218, end: 20181218

REACTIONS (8)
  - Nausea [Recovering/Resolving]
  - Asthenia [Recovering/Resolving]
  - Pulse absent [Recovering/Resolving]
  - Loss of consciousness [Recovering/Resolving]
  - Dyspnoea [Recovering/Resolving]
  - Seizure [Recovering/Resolving]
  - Pallor [Recovering/Resolving]
  - Vomiting [Recovering/Resolving]

NARRATIVE: CASE EVENT DATE: 20181218
